FAERS Safety Report 25956932 (Version 1)
Quarter: 2025Q4

REPORT INFORMATION
  Report Type: Spontaneous
  Country: US (occurrence: None)
  Receive Date: 20251023
  Receipt Date: 20251023
  Transmission Date: 20260118
  Serious: Yes (Other)
  Sender: FDA-CTU
  Company Number: None

PATIENT
  Age: 55 Year
  Sex: Female
  Weight: 76.5 kg

DRUGS (4)
  1. LISDEXAMFETAMINE [Suspect]
     Active Substance: LISDEXAMFETAMINE
     Indication: Attention deficit hyperactivity disorder
     Dosage: OTHER QUANTITY : 1 CAPSULE(S);?
     Route: 048
     Dates: start: 20251016, end: 20251023
  2. BUPROPION HYDROCHLORIDE [Concomitant]
     Active Substance: BUPROPION HYDROCHLORIDE
  3. VENLAFAXINE HYDROCHLORIDE ER [Concomitant]
     Active Substance: VENLAFAXINE HYDROCHLORIDE
  4. Lisinopril hctz 10-12.5mg [Concomitant]

REACTIONS (3)
  - Mood altered [None]
  - Intrusive thoughts [None]
  - Anxiety [None]

NARRATIVE: CASE EVENT DATE: 20251023
